FAERS Safety Report 6917763-3 (Version None)
Quarter: 2010Q3

REPORT INFORMATION
  Report Type: 
  Country: None (occurrence: None)
  Receive Date: 20100810
  Receipt Date: 20100729
  Transmission Date: 20110219
  Serious: Yes (Hospitalization)
  Sender: FDA-Public Use
  Company Number: FR-PFIZER INC-2010095260

PATIENT
  Age: 45 Year
  Sex: Female

DRUGS (8)
  1. LYRICA [Suspect]
     Indication: FIBROMYALGIA
     Dosage: 1 DF, 2X/DAY
     Route: 048
     Dates: start: 20090101
  2. TRAMADOL (MONOCRIXO) [Suspect]
     Indication: FIBROMYALGIA
     Dosage: 400 MG, 1X/DAY
     Route: 048
     Dates: start: 20090101
  3. THIOCOLCHICOSIDE [Suspect]
     Indication: FIBROMYALGIA
     Dosage: 1 DF, 3X/DAY
     Route: 048
     Dates: start: 20090101
  4. CHONDROSULF [Suspect]
     Indication: FIBROMYALGIA
     Dosage: 400 MG, 3X/DAY
     Route: 048
     Dates: start: 20090101
  5. TRIVASTAL [Suspect]
     Indication: FIBROMYALGIA
     Dosage: 1 DF, 1X/DAY
     Route: 048
     Dates: start: 20090101
  6. FLUOXETINE HYDROCHLORIDE [Suspect]
     Dosage: 1 DF, 3X/DAY
     Route: 048
  7. ACETAMINOPHEN [Suspect]
     Dosage: UNK
     Route: 048
  8. LEVOTHYROXINE SODIUM [Suspect]
     Dosage: 137.5 UG, 1X/DAY
     Route: 048

REACTIONS (6)
  - CONSTIPATION [None]
  - COORDINATION ABNORMAL [None]
  - HYPERHIDROSIS [None]
  - MEMORY IMPAIRMENT [None]
  - NAUSEA [None]
  - VOMITING [None]
